FAERS Safety Report 4847722-6 (Version None)
Quarter: 2005Q4

REPORT INFORMATION
  Report Type: 
  Country: None (occurrence: None)
  Receive Date: 20051207
  Receipt Date: 20051130
  Transmission Date: 20060501
  Serious: Yes (Hospitalization, Disabling)
  Sender: FDA-Public Use
  Company Number: US-MERCK-0512USA00302

PATIENT
  Sex: Male
  Weight: 75 kg

DRUGS (6)
  1. VIOXX [Suspect]
     Indication: SHOULDER PAIN
     Route: 048
     Dates: start: 20030428, end: 20040101
  2. CELEBREX [Concomitant]
     Route: 065
  3. SKELAXIN [Concomitant]
     Route: 065
  4. CARISOPRODOL [Concomitant]
     Route: 065
  5. HYDROCODONE BITARTRATE [Concomitant]
     Route: 065
  6. BIDEX [Concomitant]
     Route: 065

REACTIONS (4)
  - BACK DISORDER [None]
  - CEREBROVASCULAR ACCIDENT [None]
  - NAIL AVULSION [None]
  - PULMONARY MASS [None]
